FAERS Safety Report 16991144 (Version 1)
Quarter: 2019Q4

REPORT INFORMATION
  Report Type: Spontaneous
  Country: US (occurrence: US)
  Receive Date: 20191104
  Receipt Date: 20191104
  Transmission Date: 20200122
  Serious: Yes (Death, Hospitalization, Other)
  Sender: FDA-Public Use
  Company Number: US-ELI_LILLY_AND_COMPANY-US201910015223

PATIENT
  Sex: Male

DRUGS (10)
  1. AMIODARONE ZYDUS [Concomitant]
     Active Substance: AMIODARONE
     Indication: PRODUCT USED FOR UNKNOWN INDICATION
     Dosage: 200 MG, DAILY
     Route: 065
  2. CYMBALTA [Suspect]
     Active Substance: DULOXETINE HYDROCHLORIDE
     Indication: PRODUCT USED FOR UNKNOWN INDICATION
     Dosage: 30 MG, EACH MORNING
     Route: 065
  3. LYRICA [Concomitant]
     Active Substance: PREGABALIN
     Indication: NERVE INJURY
     Dosage: 50 MG, EACH MORNING
     Route: 065
     Dates: start: 2018, end: 201906
  4. TYLENOL EXTRA STRENGTH [Concomitant]
     Active Substance: ACETAMINOPHEN
     Dosage: 500 MG, EACH EVENING
  5. LYRICA [Concomitant]
     Active Substance: PREGABALIN
     Dosage: 100 MG, EACH EVENING
     Route: 065
     Dates: start: 2018
  6. FUROSEMIDE. [Concomitant]
     Active Substance: FUROSEMIDE
     Indication: PRODUCT USED FOR UNKNOWN INDICATION
     Dosage: 60 MG, DAILY
  7. VITAMIN B12 [Concomitant]
     Active Substance: CYANOCOBALAMIN
     Indication: PRODUCT USED FOR UNKNOWN INDICATION
     Dosage: 5000 MG, DAILY
  8. BALSALAZIDE [Concomitant]
     Active Substance: BALSALAZIDE
     Indication: PRODUCT USED FOR UNKNOWN INDICATION
     Dosage: 750 MG, BID
  9. COQ10 EXCEL [Concomitant]
     Indication: CARDIAC DISORDER
     Dosage: 200 MG, DAILY
  10. TYLENOL EXTRA STRENGTH [Concomitant]
     Active Substance: ACETAMINOPHEN
     Indication: PAIN
     Dosage: 500 MG, EACH MORNING

REACTIONS (4)
  - Cardiac failure [Fatal]
  - Ulcer haemorrhage [Unknown]
  - Pneumonia [Unknown]
  - Dyspnoea [Unknown]

NARRATIVE: CASE EVENT DATE: 201906
